FAERS Safety Report 17092669 (Version 3)
Quarter: 2019Q4

REPORT INFORMATION
  Report Type: Report from Study
  Country: AU (occurrence: AU)
  Receive Date: 20191129
  Receipt Date: 20191218
  Transmission Date: 20200122
  Serious: No
  Sender: FDA-Public Use
  Company Number: AU-BEH-2019110010

PATIENT
  Age: 75 Year
  Sex: Female
  Weight: 85 kg

DRUGS (8)
  1. HIZENTRA [Suspect]
     Active Substance: HUMAN IMMUNOGLOBULIN G
     Dosage: 8 GRAM, TOT
     Route: 058
     Dates: start: 20191126, end: 20191126
  2. HIZENTRA [Suspect]
     Active Substance: HUMAN IMMUNOGLOBULIN G
     Dosage: 8 GRAM (40 ML), TOT
     Route: 058
     Dates: start: 20191210, end: 20191210
  3. ASPIRIN. [Concomitant]
     Active Substance: ASPIRIN
     Dosage: UNK, QD
     Route: 065
  4. OXYTROL [Concomitant]
     Active Substance: OXYBUTYNIN
     Indication: BLADDER DISORDER
  5. VAGIFEM [Concomitant]
     Active Substance: ESTRADIOL
     Dosage: UNK, BIW
     Route: 065
  6. HIZENTRA [Suspect]
     Active Substance: HUMAN IMMUNOGLOBULIN G
     Indication: SECONDARY IMMUNODEFICIENCY
     Dosage: 8 GRAM/40 ML, QW
     Route: 058
     Dates: start: 20191126
  7. PARIET [Concomitant]
     Active Substance: RABEPRAZOLE SODIUM
  8. HIZENTRA [Suspect]
     Active Substance: HUMAN IMMUNOGLOBULIN G
     Dosage: 8 GRAM (40 ML), TOT
     Route: 058
     Dates: start: 20191203, end: 20191203

REACTIONS (13)
  - Injection site swelling [Recovered/Resolved]
  - Infusion site discomfort [Unknown]
  - Injection site pain [Recovered/Resolved]
  - Infusion site swelling [Unknown]
  - Injection site extravasation [Recovered/Resolved]
  - Infusion site swelling [Unknown]
  - Infusion site erythema [Unknown]
  - Infusion site pruritus [Unknown]
  - Infusion site erythema [Unknown]
  - Injection site paraesthesia [Unknown]
  - Injection site erythema [Recovered/Resolved]
  - Injection site mass [Not Recovered/Not Resolved]
  - Infusion site nodule [Unknown]

NARRATIVE: CASE EVENT DATE: 20191126
